FAERS Safety Report 20547055 (Version 3)
Quarter: 2022Q2

REPORT INFORMATION
  Report Type: Other
  Country: JP (occurrence: JP)
  Receive Date: 20220303
  Receipt Date: 20220421
  Transmission Date: 20220720
  Serious: Yes (Other)
  Sender: FDA-Public Use
  Company Number: JP-CHUGAI-2022006258

PATIENT
  Age: 80 Year
  Sex: Female

DRUGS (6)
  1. XELODA [Suspect]
     Active Substance: CAPECITABINE
     Indication: Colon cancer
     Dosage: 2400 MILLIGRAM
     Route: 048
  2. OXALIPLATIN [Concomitant]
     Active Substance: OXALIPLATIN
     Indication: Colon cancer
     Dosage: 100 MILLIGRAM
     Route: 041
  3. RAMUCIRUMAB [Concomitant]
     Active Substance: RAMUCIRUMAB
  4. LEUCOVORIN [Concomitant]
     Active Substance: LEUCOVORIN
     Dosage: 275 MG/BODY,
  5. IRINOTECAN [Concomitant]
     Active Substance: IRINOTECAN
     Dosage: 200 MG/BODY
  6. FLUOROURACIL [Concomitant]
     Active Substance: FLUOROURACIL

REACTIONS (2)
  - Metastases to peritoneum [Unknown]
  - Off label use [Unknown]
